FAERS Safety Report 24724005 (Version 1)
Quarter: 2024Q4

REPORT INFORMATION
  Report Type: Report from Study
  Country: US (occurrence: US)
  Receive Date: 20241211
  Receipt Date: 20241211
  Transmission Date: 20250115
  Serious: Yes (Hospitalization)
  Sender: ABBVIE
  Company Number: US-ABBVIE-6033960

PATIENT
  Age: 70 Year
  Sex: Female

DRUGS (1)
  1. RINVOQ [Suspect]
     Active Substance: UPADACITINIB
     Indication: Product used for unknown indication
     Route: 048
     Dates: start: 20240401

REACTIONS (6)
  - Muscle injury [Recovered/Resolved with Sequelae]
  - Limb mass [Recovered/Resolved with Sequelae]
  - Gait inability [Unknown]
  - Muscle rupture [Unknown]
  - Wound haemorrhage [Unknown]
  - Arthralgia [Recovered/Resolved with Sequelae]

NARRATIVE: CASE EVENT DATE: 20240101
